FAERS Safety Report 7416231-2 (Version None)
Quarter: 2011Q2

REPORT INFORMATION
  Report Type: 
  Country: None (occurrence: None)
  Receive Date: 20110414
  Receipt Date: 20110411
  Transmission Date: 20111010
  Serious: Yes (Hospitalization, Other)
  Sender: FDA-Public Use
  Company Number: US-PFIZER INC-2011024773

PATIENT
  Sex: Female

DRUGS (9)
  1. COLCHICINE [Concomitant]
     Indication: GOUT
     Dosage: UNK
     Dates: start: 20070301, end: 20100601
  2. CYTOMEL [Concomitant]
     Indication: HYPOTHYROIDISM
     Dosage: UNK
     Dates: start: 20071001
  3. LOTENSIN HCT [Concomitant]
     Indication: HYPERTENSION
     Dosage: UNK
     Dates: start: 20060701
  4. THYROID TAB [Concomitant]
     Indication: HYPOTHYROIDISM
     Dosage: UNK
     Dates: start: 20060501, end: 20090601
  5. DYAZIDE [Concomitant]
     Indication: HYPERTENSION
     Dosage: UNK
     Dates: start: 20080201
  6. CHANTIX [Suspect]
     Indication: SMOKING CESSATION THERAPY
     Dosage: ONE STARTER PACK AND TWO CONTINUATION PACKS
     Dates: start: 20080201, end: 20080701
  7. LUNESTA [Concomitant]
     Indication: INSOMNIA
     Dosage: UNK
     Dates: start: 20071101, end: 20080901
  8. MAXZIDE [Concomitant]
     Indication: HYPERTENSION
     Dosage: UNK
     Dates: start: 20080201
  9. PREMPRO [Concomitant]
     Indication: MENOPAUSAL SYMPTOMS
     Dosage: UNK
     Dates: start: 20040701, end: 20090501

REACTIONS (15)
  - MENTAL DISORDER [None]
  - AGGRESSION [None]
  - PANIC ATTACK [None]
  - MAJOR DEPRESSION [None]
  - LETHARGY [None]
  - INSOMNIA [None]
  - SUICIDE ATTEMPT [None]
  - SOCIAL AVOIDANT BEHAVIOUR [None]
  - MENTAL STATUS CHANGES [None]
  - HOMICIDAL IDEATION [None]
  - AGORAPHOBIA [None]
  - DYSPHORIA [None]
  - ANXIETY [None]
  - JUDGEMENT IMPAIRED [None]
  - INTENTIONAL OVERDOSE [None]
